FAERS Safety Report 11189795 (Version 1)
Quarter: 2015Q2

REPORT INFORMATION
  Report Type: Spontaneous
  Country: US (occurrence: None)
  Receive Date: 20150612
  Receipt Date: 20150612
  Transmission Date: 20150821
  Serious: Yes (Disabling, Other)
  Sender: FDA-Public Use
  Company Number: None

PATIENT
  Age: 35 Year
  Sex: Female
  Weight: 61.24 kg

DRUGS (1)
  1. AVONEX [Suspect]
     Active Substance: INTERFERON BETA-1A
     Indication: MULTIPLE SCLEROSIS
     Route: 058
     Dates: start: 20150505, end: 20150609

REACTIONS (7)
  - Musculoskeletal disorder [None]
  - Hypoaesthesia [None]
  - Faecal incontinence [None]
  - Neuralgia [None]
  - Multiple sclerosis relapse [None]
  - Paraesthesia [None]
  - Urinary incontinence [None]

NARRATIVE: CASE EVENT DATE: 20150602
